FAERS Safety Report 16050027 (Version 1)
Quarter: 2019Q1

REPORT INFORMATION
  Report Type: Report from Study
  Country: IT (occurrence: IT)
  Receive Date: 20190308
  Receipt Date: 20190308
  Transmission Date: 20190418
  Serious: Yes (Other)
  Sender: FDA-Public Use
  Company Number: IT-ACCORD-111362

PATIENT
  Age: 70 Year
  Sex: Female

DRUGS (2)
  1. NIFEDICOR [Suspect]
     Active Substance: NIFEDIPINE
     Indication: HYPERTENSION
     Dosage: STRENGTH: 20 MG/ ML
     Dates: start: 20180825
  2. OLMESARTAN/OLMESARTAN MEDOXOMIL [Suspect]
     Active Substance: OLMESARTAN MEDOXOMIL
     Indication: HYPERTENSION

REACTIONS (2)
  - Hypertensive crisis [Recovering/Resolving]
  - Headache [Recovering/Resolving]

NARRATIVE: CASE EVENT DATE: 20180827
